FAERS Safety Report 8000306-3 (Version None)
Quarter: 2011Q4

REPORT INFORMATION
  Report Type: 
  Country: None (occurrence: None)
  Receive Date: 20111216
  Receipt Date: 20111208
  Transmission Date: 20120403
  Serious: Yes (Other)
  Sender: FDA-Public Use
  Company Number: 2011SP052462

PATIENT
  Age: 30 Year
  Sex: Female
  Weight: 54 kg

DRUGS (3)
  1. IMPLANON [Suspect]
     Indication: CONTRACEPTION
     Dosage: ; SC
     Route: 058
     Dates: start: 20110801
  2. IMPLANON [Suspect]
     Indication: CONTRACEPTION
     Dosage: ; SC
     Route: 058
     Dates: start: 20080101
  3. DIANE 35 [Concomitant]

REACTIONS (4)
  - AMENORRHOEA [None]
  - MENSTRUAL DISORDER [None]
  - MENSTRUATION DELAYED [None]
  - BREAST MASS [None]
